FAERS Safety Report 13158571 (Version 4)
Quarter: 2017Q1

REPORT INFORMATION
  Report Type: Spontaneous
  Country: US (occurrence: US)
  Receive Date: 20170127
  Receipt Date: 20170213
  Transmission Date: 20170428
  Serious: Yes (Hospitalization, Other)
  Sender: FDA-Public Use
  Company Number: US-SAOL THERAPEUTICS-2017SAO00158

PATIENT
  Age: 25 Year
  Sex: Male
  Weight: 66.5 kg

DRUGS (2)
  1. LIORESAL [Suspect]
     Active Substance: BACLOFEN
     Indication: MUSCLE SPASTICITY
     Dosage: UNK
     Dates: start: 2008
  2. LIORESAL [Suspect]
     Active Substance: BACLOFEN
     Indication: CEREBRAL PALSY
     Dosage: 769.6 ?G, \DAY

REACTIONS (8)
  - Drug dose omission [Recovered/Resolved]
  - Encephalopathy [Recovered/Resolved]
  - Culture urine positive [Recovering/Resolving]
  - Pneumonia bacterial [Recovering/Resolving]
  - Urinary tract infection [Recovering/Resolving]
  - Hypotension [Recovering/Resolving]
  - Sputum culture positive [Recovering/Resolving]
  - Drug withdrawal syndrome [Recovered/Resolved]

NARRATIVE: CASE EVENT DATE: 201701
